FAERS Safety Report 22178222 (Version 1)
Quarter: 2023Q2

REPORT INFORMATION
  Report Type: Other
  Country: None (occurrence: BE)
  Receive Date: 20230405
  Receipt Date: 20230405
  Transmission Date: 20230722
  Serious: Yes (Other)
  Sender: FDA-Public Use
  Company Number: BE-Breckenridge Pharmaceutical, Inc.-2139934

PATIENT
  Age: 12 Year
  Sex: Male

DRUGS (1)
  1. METHYLPHENIDATE [Suspect]
     Active Substance: METHYLPHENIDATE
     Indication: Attention deficit hyperactivity disorder
     Route: 048

REACTIONS (3)
  - Alice in wonderland syndrome [Recovering/Resolving]
  - Dysmetropsia [Recovering/Resolving]
  - Dysmetropsia [Recovering/Resolving]
